FAERS Safety Report 4594735-8 (Version None)
Quarter: 2005Q1

REPORT INFORMATION
  Report Type: 
  Country: None (occurrence: None)
  Receive Date: 20050301
  Receipt Date: 20041123
  Transmission Date: 20050727
  Serious: Yes (Disabling)
  Sender: FDA-Public Use
  Company Number: DE-BRISTOL-MYERS SQUIBB COMPANY-12774436

PATIENT
  Age: 54 Year
  Sex: Female
  Weight: 83 kg

DRUGS (1)
  1. PACLITAXEL [Suspect]
     Indication: BREAST CANCER
     Dosage: C2: 03-SEP-04; C3: 17-SEP-2004
     Route: 042
     Dates: start: 20040820, end: 20040820

REACTIONS (5)
  - ARTHRALGIA [None]
  - MASTITIS [None]
  - MYALGIA [None]
  - ONYCHOMADESIS [None]
  - PARAESTHESIA [None]
